FAERS Safety Report 14746696 (Version 1)
Quarter: 2018Q2

REPORT INFORMATION
  Report Type: Spontaneous
  Country: CN (occurrence: CN)
  Receive Date: 20180411
  Receipt Date: 20180411
  Transmission Date: 20180711
  Serious: Yes (Other)
  Sender: FDA-Public Use
  Company Number: CN-PFIZER INC-2018147252

PATIENT
  Age: 58 Year
  Sex: Male

DRUGS (3)
  1. DIGOXIN. [Suspect]
     Active Substance: DIGOXIN
     Indication: ATRIAL FLUTTER
     Dosage: 0.125 MG, DAILY
     Route: 048
     Dates: start: 20180118, end: 20180123
  2. BETALOC ZOK [Suspect]
     Active Substance: METOPROLOL SUCCINATE
     Indication: ATRIAL FLUTTER
     Dosage: 23.75 G, DAILY
     Route: 048
     Dates: start: 20180118, end: 20180130
  3. CORDARONE [Suspect]
     Active Substance: AMIODARONE HYDROCHLORIDE
     Indication: ATRIAL FLUTTER
     Dosage: 1 DF, DAILY
     Route: 048
     Dates: start: 20180118, end: 20180123

REACTIONS (5)
  - Defect conduction intraventricular [Recovering/Resolving]
  - Atrioventricular block first degree [Recovering/Resolving]
  - Supraventricular extrasystoles [Recovering/Resolving]
  - Atrial fibrillation [Unknown]
  - Bradycardia [Recovering/Resolving]

NARRATIVE: CASE EVENT DATE: 20180123
